FAERS Safety Report 8910681 (Version 2)
Quarter: 2012Q4

REPORT INFORMATION
  Report Type: Spontaneous
  Country: GB (occurrence: None)
  Receive Date: 20121108
  Receipt Date: 20121128
  Transmission Date: 20130627
  Serious: Yes (Hospitalization)
  Sender: FDA-Public Use
  Company Number: AUR-APL-2012-04717

PATIENT
  Age: 53 Year
  Sex: Female

DRUGS (8)
  1. MIRTAZAPINE (MIRTAZAPINE) [Suspect]
     Indication: DRUG USE FOR UNKNOWN INDICATION
     Route: 048
     Dates: start: 201210
  2. ATORVASTATIN (ATORVASTATIN) [Concomitant]
  3. CLOPIDOGREL (CLOPIDOGREL) [Concomitant]
  4. FOLIC ACID (FOLIC ACID) [Concomitant]
  5. METHOTREXATE (METHOTREXATE) [Concomitant]
  6. OMEPRAZOLE (OMEPRAZOLE) [Concomitant]
  7. PARACETAMOL (PARACETAMOL) [Concomitant]
  8. THYROXINE (LEVOTHYROXINE SODIUM) [Concomitant]

REACTIONS (1)
  - Neutropenic sepsis [None]
